FAERS Safety Report 4747997-8 (Version None)
Quarter: 2005Q3

REPORT INFORMATION
  Report Type: 
  Country: None (occurrence: None)
  Receive Date: 20050818
  Receipt Date: 20050811
  Transmission Date: 20060218
  Serious: Yes (Other)
  Sender: FDA-Public Use
  Company Number: US-BRISTOL-MYERS SQUIBB COMPANY-13073838

PATIENT
  Age: 54 Year
  Sex: Female
  Weight: 5607 kg

DRUGS (2)
  1. ERBITUX [Suspect]
     Indication: RECTAL CANCER
     Dosage: FIRST DOSE ADMINISTERED (648 MG) ON 03-AUG-2005.  SECOND DOSE ON 10-AUG-2005 51 CC (114 MG).
     Route: 042
     Dates: start: 20050810, end: 20050810
  2. BENADRYL [Concomitant]
     Indication: PREMEDICATION
     Route: 042
     Dates: start: 20050810, end: 20050810

REACTIONS (2)
  - CHEST DISCOMFORT [None]
  - DYSPNOEA [None]
